FAERS Safety Report 7975236-3 (Version None)
Quarter: 2011Q4

REPORT INFORMATION
  Report Type: 
  Country: None (occurrence: None)
  Receive Date: 20111213
  Receipt Date: 20110922
  Transmission Date: 20120403
  Serious: No
  Sender: FDA-Public Use
  Company Number: US-AMGEN-USASP2011049160

PATIENT
  Age: 55 Year
  Sex: Female

DRUGS (8)
  1. BENICAR [Concomitant]
  2. LORTAB [Concomitant]
  3. ALBUTEROL [Concomitant]
  4. ADVAIR DISKUS 100/50 [Concomitant]
  5. ENBREL [Suspect]
     Indication: RHEUMATOID ARTHRITIS
     Dosage: 50 MG, QWK
  6. MORPHINE [Concomitant]
  7. XANAX [Concomitant]
  8. OMEPRAZOLE [Concomitant]

REACTIONS (2)
  - FATIGUE [None]
  - STAPHYLOCOCCAL INFECTION [None]
